FAERS Safety Report 21942737 (Version 3)
Quarter: 2023Q2

REPORT INFORMATION
  Report Type: Spontaneous
  Country: US (occurrence: US)
  Receive Date: 20230202
  Receipt Date: 20230518
  Transmission Date: 20230722
  Serious: No
  Sender: FDA-Public Use
  Company Number: US-VIIV HEALTHCARE LIMITED-US2023AMR010321

PATIENT
  Sex: Male

DRUGS (1)
  1. DOVATO [Suspect]
     Active Substance: DOLUTEGRAVIR SODIUM\LAMIVUDINE
     Indication: HIV infection
     Dosage: 1 DF, QD, ONE TABLET DAILY, 50 MG DOLUTEGRAVIR AND 300 MG OF LAMIVUDINE
     Dates: start: 20220801

REACTIONS (5)
  - Weight decreased [Not Recovered/Not Resolved]
  - Energy increased [Not Recovered/Not Resolved]
  - Limb injury [Not Recovered/Not Resolved]
  - Brain fog [Unknown]
  - Fall [Recovered/Resolved]
